FAERS Safety Report 23859810 (Version 4)
Quarter: 2024Q4

REPORT INFORMATION
  Report Type: Spontaneous
  Country: US (occurrence: US)
  Receive Date: 20240515
  Receipt Date: 20241224
  Transmission Date: 20250115
  Serious: Yes (Other)
  Sender: BRISTOL-MYERS SQUIBB COMPANY
  Company Number: US-BRISTOL-MYERS SQUIBB COMPANY-2024-075344

PATIENT
  Age: 54 Year
  Sex: Male
  Weight: 94.35 kg

DRUGS (22)
  1. REVLIMID [Suspect]
     Active Substance: LENALIDOMIDE
     Indication: Plasma cell myeloma
     Dosage: TAKE 1 CAPSULE BY MOUTH DAILY. TAKE WHOLE WITH WATER. DO NOT BREAK, CHEW OR OPEN
     Route: 048
     Dates: start: 20210625
  2. REVLIMID [Suspect]
     Active Substance: LENALIDOMIDE
     Dosage: MAINTENANCE (POST TRANSPLANT)
     Route: 048
     Dates: start: 202208
  3. DARATUMUMAB [Suspect]
     Active Substance: DARATUMUMAB
     Indication: Plasma cell myeloma
     Dates: start: 20210625
  4. DEXAMETHASONE [Suspect]
     Active Substance: DEXAMETHASONE
     Indication: Plasma cell myeloma
     Dates: start: 20210625
  5. ROXICODONE [Concomitant]
     Active Substance: OXYCODONE HYDROCHLORIDE
     Indication: Pain
     Dosage: TAKE 1 TABLET (5 MG TOTAL) BY MOUTH EVERY 6 (SIX) HOURS AS NEEDED FOR PAIN SCALE 8-10/10?MAX DAILY A
     Route: 048
  6. PROTONIX [Concomitant]
     Active Substance: PANTOPRAZOLE SODIUM
     Indication: Product used for unknown indication
     Dosage: TAKE 1 TABLET (20 MG TOTAL) BY MOUTH 2 (TWO) TIMES A DAY
     Route: 048
  7. TYLENOL [Concomitant]
     Active Substance: ACETAMINOPHEN
     Indication: Headache
     Dosage: TAKE 1 TABLET (325 MG TOTAL) BY MOUTH EVERY 4 (FOUR) HOURS AS NEEDED FOR HEADACHES
     Route: 048
  8. OXYMETAZOLINE [Concomitant]
     Active Substance: OXYMETAZOLINE
     Indication: Nasal congestion
     Dosage: ADMINISTER 0.05 % INTO AFFECTED NOSTRIL(S) AS NEEDED (FOR NASAL CONGESTION)
     Route: 045
  9. ATIVAN [Concomitant]
     Active Substance: LORAZEPAM
     Indication: Anxiety
     Dosage: TAKE 1 TABLET (0.5 MG TOTAL) BY MOUTH EVERY?6 (SIX) HOURS AS NEEDED FOR ANXIETY
     Route: 048
  10. POTASSIUM CHLORIDE [Concomitant]
     Active Substance: POTASSIUM CHLORIDE
     Indication: Product used for unknown indication
     Dosage: TAKE 2 TABLETS (20 MEQ TOTAL) BY MOUTH DAILY (PATIENT TAKING DIFFERENTLY: TAKE 1 TABLET (10 MEQ TOTA
     Route: 048
  11. CRESTOR [Concomitant]
     Active Substance: ROSUVASTATIN CALCIUM
     Indication: Product used for unknown indication
     Dosage: TAKE 1 TABLET (20 MG TOTAL) BY MOUTH DAILY
     Route: 048
  12. METFORMIN [Concomitant]
     Active Substance: METFORMIN HYDROCHLORIDE
     Indication: Type 2 diabetes mellitus
     Dosage: TAKE 1 TABLET (500MG TOTAL) BY MOUTH DAILY
     Route: 048
  13. FLONASE [Concomitant]
     Active Substance: FLUTICASONE PROPIONATE
     Indication: Product used for unknown indication
     Dosage: ADMINISTER 1 SPRAY INTO EACH NOSTRIL DAILY. DO NOT EXCEED 4 SPRAYS PER DAY
     Route: 045
  14. CALCIUM CARBONATE\VITAMIN D [Concomitant]
     Active Substance: CALCIUM CARBONATE\VITAMIN D
     Indication: Product used for unknown indication
     Dosage: TAKE 1 TABLET BY MOUTH DAILY. CALCIUM 600MG / VITAMIN D3 800 IU
     Route: 048
  15. MIRAPEX [Concomitant]
     Active Substance: PRAMIPEXOLE DIHYDROCHLORIDE
     Indication: Product used for unknown indication
     Dosage: TAKE 1 TABLET (0.5 MG TOTAL) BY MOUTH EVERY EVENING
     Route: 048
  16. TRICOR [Concomitant]
     Active Substance: FENOFIBRATE
     Indication: Product used for unknown indication
     Dosage: TAKE 1 TABLET (145 MG TOTAL) BY MOUTH DAILY
     Route: 048
  17. VITAMIN D3 [Concomitant]
     Active Substance: CHOLECALCIFEROL
     Indication: Product used for unknown indication
     Dosage: TAKE 1 CAPSULE (5000 UNITS TOTAL) BY MOUTH DAILY
     Route: 048
  18. LORATADINE [Concomitant]
     Active Substance: LORATADINE
     Indication: Rhinitis allergic
     Dosage: TAKE 1 TABLET (10 MG TOTAL) BY MOUTH DAILY
     Route: 048
  19. THERAGRAN [VITAMINS NOS] [Concomitant]
     Indication: Product used for unknown indication
     Route: 048
  20. ELIQUIS [Concomitant]
     Active Substance: APIXABAN
     Indication: Atrial fibrillation
  21. ASPIRIN [Concomitant]
     Active Substance: ASPIRIN
     Indication: Product used for unknown indication
     Route: 048
  22. TOPROL XL [Concomitant]
     Active Substance: METOPROLOL SUCCINATE
     Indication: Product used for unknown indication
     Dosage: 25 MG 24 HR TABLET, TAKE 1 TABLET (25 MG TOTAL) BY MOUTH DAILY,
     Route: 048

REACTIONS (8)
  - Weight decreased [Unknown]
  - Hypoaesthesia [Unknown]
  - Pain in extremity [Unknown]
  - Sciatica [Unknown]
  - Lumbar radiculopathy [Unknown]
  - Lumbar spinal stenosis [Unknown]
  - Spinal claudication [Unknown]
  - Spinal compression fracture [Unknown]

NARRATIVE: CASE EVENT DATE: 20240705
